FAERS Safety Report 7506072-X (Version None)
Quarter: 2011Q2

REPORT INFORMATION
  Report Type: 
  Country: None (occurrence: None)
  Receive Date: 20110526
  Receipt Date: 20110520
  Transmission Date: 20111010
  Serious: Yes (Hospitalization)
  Sender: FDA-Public Use
  Company Number: US-ROCHE-778639

PATIENT
  Sex: Female
  Weight: 68 kg

DRUGS (1)
  1. BONIVA [Suspect]
     Route: 065

REACTIONS (3)
  - WEIGHT DECREASED [None]
  - MOBILITY DECREASED [None]
  - VOMITING [None]
